FAERS Safety Report 15654478 (Version 2)
Quarter: 2019Q3

REPORT INFORMATION
  Report Type: Report from Study
  Country: US (occurrence: US)
  Receive Date: 20181126
  Receipt Date: 20190909
  Transmission Date: 20191004
  Serious: Yes (Other)
  Sender: FDA-Public Use
  Company Number: US-ROCHE-2218141

PATIENT
  Sex: Female

DRUGS (3)
  1. COBIMETINIB. [Suspect]
     Active Substance: COBIMETINIB
     Indication: INFLAMMATORY CARCINOMA OF THE BREAST
     Dosage: ON 31/OCT/2018 HE RECEIVED MOST RECENT DOSE.
     Route: 048
     Dates: start: 20180718
  2. ATEZOLIZUMAB. [Suspect]
     Active Substance: ATEZOLIZUMAB
     Indication: INFLAMMATORY CARCINOMA OF THE BREAST
     Dosage: ON 31/OCT/2018 HE RECEIVED MOST RECENT DOSE.
     Route: 042
     Dates: start: 20180718
  3. ERIBULIN [Suspect]
     Active Substance: ERIBULIN
     Indication: INFLAMMATORY CARCINOMA OF THE BREAST
     Dosage: ON 31/OCT/2018 HE RECEIVED MOST RECENT DOSE.
     Route: 042
     Dates: start: 20180718

REACTIONS (2)
  - Ejection fraction decreased [Recovered/Resolved]
  - Ejection fraction decreased [Unknown]

NARRATIVE: CASE EVENT DATE: 20180905
